FAERS Safety Report 8521225-X (Version None)
Quarter: 2012Q3

REPORT INFORMATION
  Report Type: 
  Country: None (occurrence: None)
  Receive Date: 20120719
  Receipt Date: 20120704
  Transmission Date: 20120928
  Serious: Yes (Other)
  Sender: FDA-Public Use
  Company Number: DE-ROCHE-1084463

PATIENT
  Sex: Female

DRUGS (3)
  1. AVASTIN [Suspect]
     Indication: BREAST CANCER
     Route: 065
  2. HERCEPTIN [Suspect]
     Indication: BREAST CANCER
     Route: 065
  3. XELODA [Suspect]
     Indication: BREAST CANCER
     Route: 065

REACTIONS (43)
  - HYPERTENSION [None]
  - IMPAIRED HEALING [None]
  - INTESTINAL PERFORATION [None]
  - ANXIETY [None]
  - HYPERHIDROSIS [None]
  - CHILLS [None]
  - DIZZINESS [None]
  - DECREASED APPETITE [None]
  - POLYNEUROPATHY [None]
  - WEIGHT DECREASED [None]
  - MUCOSAL INFLAMMATION [None]
  - PROTEINURIA [None]
  - RASH [None]
  - NAIL TOXICITY [None]
  - THROMBOCYTOPENIA [None]
  - ARTHRALGIA [None]
  - CARDIAC DISORDER [None]
  - FATIGUE [None]
  - PALMAR-PLANTAR ERYTHRODYSAESTHESIA SYNDROME [None]
  - NAUSEA [None]
  - DYSPNOEA [None]
  - LEUKOPENIA [None]
  - DIARRHOEA [None]
  - ANAEMIA [None]
  - VOMITING [None]
  - NEUTROPENIA [None]
  - PYREXIA [None]
  - SKIN REACTION [None]
  - ASTHENIA [None]
  - ABDOMINAL PAIN UPPER [None]
  - MYALGIA [None]
  - PULMONARY EMBOLISM [None]
  - EPISTAXIS [None]
  - MYOCARDIAL INFARCTION [None]
  - PAIN [None]
  - HYPERSENSITIVITY [None]
  - DYSPEPSIA [None]
  - GINGIVAL BLEEDING [None]
  - CEREBROVASCULAR ACCIDENT [None]
  - DYSGEUSIA [None]
  - BONE PAIN [None]
  - OEDEMA [None]
  - CARDIOMYOPATHY [None]
